FAERS Safety Report 15794471 (Version 2)
Quarter: 2019Q1

REPORT INFORMATION
  Report Type: Spontaneous
  Country: US (occurrence: US)
  Receive Date: 20190107
  Receipt Date: 20190114
  Transmission Date: 20190417
  Serious: Yes (Death, Hospitalization)
  Sender: FDA-Public Use
  Company Number: US-JNJFOC-20190104002

PATIENT
  Age: 40 Year
  Sex: Male

DRUGS (15)
  1. CARVEDILOL. [Suspect]
     Active Substance: CARVEDILOL
     Indication: SUICIDE ATTEMPT
     Route: 048
  2. BUPROPION. [Suspect]
     Active Substance: BUPROPION
     Indication: SUICIDE ATTEMPT
     Route: 048
  3. ATORVASTATIN [Suspect]
     Active Substance: ATORVASTATIN
     Indication: SUICIDE ATTEMPT
     Route: 048
  4. LISINOPRIL. [Suspect]
     Active Substance: LISINOPRIL
     Indication: SUICIDE ATTEMPT
     Route: 048
  5. RIVAROXABAN [Suspect]
     Active Substance: RIVAROXABAN
     Indication: SUICIDE ATTEMPT
     Route: 048
  6. LAMOTRIGINE. [Suspect]
     Active Substance: LAMOTRIGINE
     Indication: SUICIDE ATTEMPT
     Route: 048
  7. LORAZEPAM. [Suspect]
     Active Substance: LORAZEPAM
     Indication: SUICIDE ATTEMPT
     Route: 048
  8. LOVASTATIN. [Suspect]
     Active Substance: LOVASTATIN
     Indication: SUICIDE ATTEMPT
     Route: 048
  9. CYCLOBENZAPRINE. [Suspect]
     Active Substance: CYCLOBENZAPRINE
     Indication: SUICIDE ATTEMPT
     Route: 048
  10. ACETAMINOPHEN AND CODEINE [Suspect]
     Active Substance: ACETAMINOPHEN\CODEINE PHOSPHATE
     Indication: SUICIDE ATTEMPT
     Route: 048
  11. HALOPERIDOL. [Suspect]
     Active Substance: HALOPERIDOL
     Indication: SUICIDE ATTEMPT
     Route: 048
  12. HYDROXYZINE [Suspect]
     Active Substance: HYDROXYZINE HYDROCHLORIDE
     Indication: SUICIDE ATTEMPT
     Route: 048
  13. OMEPRAZOLE. [Suspect]
     Active Substance: OMEPRAZOLE
     Indication: SUICIDE ATTEMPT
     Route: 048
  14. METFORMIN [Suspect]
     Active Substance: METFORMIN HYDROCHLORIDE
     Indication: SUICIDE ATTEMPT
     Route: 048
  15. LEVOTHYROXINE. [Suspect]
     Active Substance: LEVOTHYROXINE
     Indication: SUICIDE ATTEMPT
     Route: 048

REACTIONS (1)
  - Toxicity to various agents [Fatal]
